FAERS Safety Report 7380649-7 (Version None)
Quarter: 2011Q1

REPORT INFORMATION
  Report Type: 
  Country: None (occurrence: None)
  Receive Date: 20110321
  Receipt Date: 20110311
  Transmission Date: 20110831
  Serious: Yes (Death)
  Sender: FDA-Public Use
  Company Number: US-2011-10121

PATIENT
  Age: 66 Year
  Sex: Male

DRUGS (4)
  1. FLUDARA [Suspect]
     Dosage: 150 MG MILLIGRAM(S), DAILY DOSE
  2. CLOFARABINE (CLOFARABINE) [Concomitant]
  3. CAMPATH [Suspect]
     Indication: STEM CELL TRANSPLANT
     Dosage: 100 MG MILLIGRAM(S), DAILY DOSE
  4. BUSULFEX [Suspect]
     Dosage: 3.2 MG/KG, DAILY DOSE

REACTIONS (2)
  - ACUTE MYELOID LEUKAEMIA [None]
  - NEOPLASM MALIGNANT [None]
